FAERS Safety Report 10024496 (Version 1)
Quarter: 2014Q1

REPORT INFORMATION
  Report Type: Spontaneous
  Country: FI (occurrence: FI)
  Receive Date: 20140320
  Receipt Date: 20140320
  Transmission Date: 20141002
  Serious: Yes (Hospitalization)
  Sender: FDA-Public Use
  Company Number: FI-TAKEDA-2014TUS001907

PATIENT
  Sex: 0

DRUGS (2)
  1. COLCHICINE [Suspect]
     Indication: POSTPERICARDIOTOMY SYNDROME
     Dosage: UNK
  2. CORTICOSTEROIDS [Concomitant]
     Dosage: UNK

REACTIONS (4)
  - Pyrexia [Unknown]
  - C-reactive protein increased [Unknown]
  - Leukocytosis [Unknown]
  - Off label use [Not Recovered/Not Resolved]
